FAERS Safety Report 9192626 (Version 3)
Quarter: 2013Q3

REPORT INFORMATION
  Report Type: Spontaneous
  Country: US (occurrence: None)
  Receive Date: 20130325
  Receipt Date: 20130723
  Transmission Date: 20140515
  Serious: Yes (Hospitalization, Other)
  Sender: FDA-Public Use
  Company Number: ACO_34795_2013

PATIENT
  Age: 61 Year
  Sex: Male
  Weight: 102 kg

DRUGS (18)
  1. AMPYRA (DALFAMPRIDINE) TABLET, 10MG [Suspect]
     Indication: GAIT DISTURBANCE
     Route: 048
     Dates: start: 2010, end: 201302
  2. ATENOLOL (ATENOLOL) [Concomitant]
  3. AMIODARONE (AMIODARONE) [Concomitant]
  4. PREVACID (LANSOPRAZOLE) [Concomitant]
  5. ASPIRIN (ACETYLSALICYLIC ACID) [Concomitant]
  6. CYCLOBENZAPRINE (CYCLOBENZAPRINE) [Concomitant]
  7. PLAVIX (CLOPIDOGREL BISULFATE) [Concomitant]
  8. LISINOPRIL (LISINOPRIL) [Concomitant]
  9. NIASPAN (NICOTINIC ACID) [Concomitant]
  10. VESICARE (SOLIFENACIN SUCCINATE) [Concomitant]
  11. NITROSTAT (GLYCERYL TRINITRATE) [Concomitant]
  12. VITAMIN B12 (CYANOCOBALAMIN) [Concomitant]
  13. FISH OIL (FISH OIL) [Concomitant]
  14. VITAMIN D (ERGOCALCIFEROL) [Concomitant]
  15. MULTIVITAMIN (VITAMINS NOS) [Concomitant]
  16. CORTICOSTEROIDS [Concomitant]
  17. AVONEX [Suspect]
     Route: 042
  18. CRESTOR (ROSUVASTATIN CALCIUM) [Suspect]
     Indication: PRODUCT USED FOR UNKNOWN INDICATION

REACTIONS (5)
  - Neoplasm malignant [None]
  - Cystitis [None]
  - Sepsis [None]
  - Kidney infection [None]
  - Liver function test abnormal [None]
